FAERS Safety Report 16945718 (Version 7)
Quarter: 2020Q1

REPORT INFORMATION
  Report Type: Report from Study
  Country: RU (occurrence: RU)
  Receive Date: 20191022
  Receipt Date: 20200224
  Transmission Date: 20200409
  Serious: Yes (Life-Threatening, Hospitalization)
  Sender: FDA-Public Use
  Company Number: NVSC2019RU003432

PATIENT
  Age: 35 Year
  Sex: Female
  Weight: 55 kg

DRUGS (25)
  1. COMPARATOR DAUNORUBICIN [Suspect]
     Active Substance: DAUNORUBICIN
     Indication: ACUTE MYELOID LEUKAEMIA
     Dosage: 60 MG/M2, QD
     Route: 042
     Dates: start: 20190906
  2. VIKASOL [Concomitant]
     Active Substance: MENADIONE
     Indication: PROPHYLAXIS
     Dosage: UNK
     Route: 065
     Dates: start: 20191002, end: 20191021
  3. CHLORPROTIXEN [Concomitant]
     Active Substance: CHLORPROTHIXENE HYDROCHLORIDE
     Indication: PROPHYLAXIS
     Dosage: UNK
     Route: 065
     Dates: start: 20191007
  4. KETOPROFEN. [Concomitant]
     Active Substance: KETOPROFEN
     Indication: PROCTITIS
  5. OMEPRAZOLE. [Concomitant]
     Active Substance: OMEPRAZOLE
     Indication: PROPHYLAXIS
     Dosage: UNK
     Route: 065
     Dates: start: 20190903
  6. DIACARB [Concomitant]
     Indication: PROPHYLAXIS
     Dosage: UNK
     Route: 065
     Dates: start: 20190929, end: 20191021
  7. AMIKACIN. [Concomitant]
     Active Substance: AMIKACIN
     Indication: FEBRILE NEUTROPENIA
     Dosage: UNK
     Route: 065
     Dates: start: 20190911, end: 20190927
  8. POTASSIUM CHLORIDE. [Concomitant]
     Active Substance: POTASSIUM CHLORIDE
     Indication: PROPHYLAXIS
     Dosage: UNK
     Route: 065
     Dates: start: 20190903
  9. THIAMINE. [Concomitant]
     Active Substance: THIAMINE
     Indication: SEPTIC SHOCK
     Dosage: UNK
     Route: 065
     Dates: start: 20190927, end: 20191021
  10. CALCIUM GLUCONATE. [Concomitant]
     Active Substance: CALCIUM GLUCONATE
     Indication: PROPHYLAXIS
     Dosage: UNK
     Route: 065
     Dates: start: 20190929, end: 20191021
  11. MIDOSTAURIN [Suspect]
     Active Substance: MIDOSTAURIN
     Indication: ACUTE MYELOID LEUKAEMIA
     Dosage: UNK
     Route: 048
     Dates: start: 20190913
  12. COMPARATOR CYTARABINE [Suspect]
     Active Substance: CYTARABINE
     Indication: ACUTE MYELOID LEUKAEMIA
     Dosage: 200 MG/M2, QD
     Route: 042
     Dates: start: 20190906
  13. PIPERACILLIN/TAZOBACTAM [Concomitant]
     Active Substance: PIPERACILLIN SODIUM\TAZOBACTAM SODIUM
     Indication: SEPTIC SHOCK
     Dosage: UNK
     Route: 065
     Dates: start: 20190929, end: 20191021
  14. ANIDULAFUNGIN [Concomitant]
     Active Substance: ANIDULAFUNGIN
     Indication: FEBRILE NEUTROPENIA
     Dosage: UNK
     Route: 065
     Dates: start: 20190924, end: 20190926
  15. FOSFOMYCIN [Concomitant]
     Active Substance: FOSFOMYCIN
     Indication: FEBRILE NEUTROPENIA
     Dosage: UNK
     Route: 065
     Dates: start: 20190922, end: 20190927
  16. AZTREONAM. [Concomitant]
     Active Substance: AZTREONAM
     Indication: SEPTIC SHOCK
     Dosage: UNK
     Route: 065
     Dates: start: 20190927, end: 20191022
  17. TIGECYCLINE. [Concomitant]
     Active Substance: TIGECYCLINE
     Indication: FEBRILE NEUTROPENIA
     Dosage: UNK
     Route: 065
     Dates: start: 20190914, end: 20190927
  18. ALBUMEN [Concomitant]
     Active Substance: EGG WHITE
     Indication: BLOOD ALBUMIN DECREASED
     Dosage: UNK
     Route: 065
     Dates: start: 20190927, end: 20191021
  19. AVIBACTAM [Concomitant]
     Active Substance: AVIBACTAM
     Indication: SEPTIC SHOCK
     Dosage: UNK
     Route: 065
     Dates: start: 20190927, end: 20191022
  20. ACYCLOVIR. [Concomitant]
     Active Substance: ACYCLOVIR
     Indication: ANTIVIRAL PROPHYLAXIS
     Dosage: UNK
     Route: 065
     Dates: start: 20190903
  21. SODIUM BICARBONATE. [Concomitant]
     Active Substance: SODIUM BICARBONATE
     Indication: SEPTIC SHOCK
     Dosage: UNK
     Route: 065
     Dates: start: 20190928, end: 20190929
  22. PLASMALYTE [Concomitant]
     Active Substance: ELECTROLYTES NOS
     Indication: PROPHYLAXIS
     Dosage: UNK
     Route: 065
     Dates: start: 20191008, end: 20191022
  23. MEROPENEM. [Concomitant]
     Active Substance: MEROPENEM
     Indication: FEBRILE NEUTROPENIA
     Dosage: UNK
     Route: 065
     Dates: start: 20190911, end: 20190927
  24. VANCOMYCIN [Concomitant]
     Active Substance: VANCOMYCIN
     Indication: FEBRILE NEUTROPENIA
     Dosage: UNK
     Route: 065
     Dates: start: 20190909, end: 20190914
  25. KETOPROFEN. [Concomitant]
     Active Substance: KETOPROFEN
     Indication: FEBRILE NEUTROPENIA
     Dosage: UNK
     Route: 065
     Dates: start: 20190907, end: 20191021

REACTIONS (1)
  - Sepsis [Recovered/Resolved]

NARRATIVE: CASE EVENT DATE: 20191003
